FAERS Safety Report 16969106 (Version 1)
Quarter: 2019Q4

REPORT INFORMATION
  Report Type: Spontaneous
  Country: CA (occurrence: CA)
  Receive Date: 20191029
  Receipt Date: 20191029
  Transmission Date: 20200122
  Serious: Yes (Other)
  Sender: FDA-Public Use
  Company Number: CA-TEVA-2019-CA-1127361

PATIENT
  Age: 27 Year
  Sex: Female

DRUGS (9)
  1. EPOETIN ALFA [Suspect]
     Active Substance: ERYTHROPOIETIN
     Indication: ANAEMIA OF CHRONIC DISEASE
     Route: 058
  2. EPOETIN ALFA [Suspect]
     Active Substance: ERYTHROPOIETIN
     Route: 058
  3. ARANESP [Suspect]
     Active Substance: DARBEPOETIN ALFA
     Route: 058
  4. PHENYTOIN. [Suspect]
     Active Substance: PHENYTOIN
     Indication: PRODUCT USED FOR UNKNOWN INDICATION
     Route: 065
  5. EPOETIN ALFA [Suspect]
     Active Substance: ERYTHROPOIETIN
     Indication: NEPHROGENIC ANAEMIA
     Route: 058
  6. MYCOPHENOLATE MOFETIL. [Suspect]
     Active Substance: MYCOPHENOLATE MOFETIL
     Indication: PRODUCT USED FOR UNKNOWN INDICATION
     Route: 065
  7. EPOETIN ALFA [Suspect]
     Active Substance: ERYTHROPOIETIN
     Route: 042
  8. ARANESP [Suspect]
     Active Substance: DARBEPOETIN ALFA
     Indication: PRODUCT USED FOR UNKNOWN INDICATION
     Route: 058
  9. EPOETIN ALFA [Suspect]
     Active Substance: ERYTHROPOIETIN
     Route: 058

REACTIONS (3)
  - Aplasia pure red cell [Recovered/Resolved]
  - Treatment failure [Recovered/Resolved]
  - Anti-erythropoietin antibody negative [Recovered/Resolved]
